FAERS Safety Report 4387836-0 (Version None)
Quarter: 2004Q2

REPORT INFORMATION
  Report Type: 
  Country: None (occurrence: None)
  Receive Date: 20040623
  Receipt Date: 20040607
  Transmission Date: 20050107
  Serious: Yes (Other)
  Sender: FDA-Public Use
  Company Number: USA040259089

PATIENT
  Age: 63 Year
  Sex: Female
  Weight: 50 kg

DRUGS (10)
  1. FORTEO [Suspect]
     Indication: OSTEOPOROSIS
     Dates: start: 20031101
  2. EXCEDRIN (MIGRAINE) [Concomitant]
  3. FOLIC ACID [Concomitant]
  4. LEVOXYL [Concomitant]
  5. PAXIL [Concomitant]
  6. COMBIVENT [Concomitant]
  7. THEOPHYLLINE [Concomitant]
  8. LOTENSIN [Concomitant]
  9. GUAIFENEX [Concomitant]
  10. REMERON [Concomitant]

REACTIONS (11)
  - ARTHRALGIA [None]
  - ARTHRITIS [None]
  - BACK PAIN [None]
  - BONE PAIN [None]
  - CYSTITIS [None]
  - DRUG INEFFECTIVE [None]
  - INSOMNIA [None]
  - MOBILITY DECREASED [None]
  - NAUSEA [None]
  - NON-SMALL CELL LUNG CANCER [None]
  - URINARY INCONTINENCE [None]
